FAERS Safety Report 20999448 (Version 3)
Quarter: 2022Q2

REPORT INFORMATION
  Report Type: Report from Study
  Country: CA (occurrence: CA)
  Receive Date: 20220623
  Receipt Date: 20220627
  Transmission Date: 20220721
  Serious: Yes (Hospitalization)
  Sender: FDA-Public Use
  Company Number: CA-JNJFOC-20220632515

PATIENT
  Age: 11 Year
  Sex: Female
  Weight: 87.6 kg

DRUGS (9)
  1. INFLIXIMAB [Suspect]
     Active Substance: INFLIXIMAB
     Indication: Inflammatory bowel disease
     Dosage: DATE OF LAST ADMINISTRATION PRIOR TO THE EVENT WAS ON 07-FEB-2022
     Route: 041
     Dates: start: 20150912
  2. ACETAMINOPHEN [Concomitant]
     Active Substance: ACETAMINOPHEN
  3. IBUPROFEN [Concomitant]
     Active Substance: IBUPROFEN
  4. GRAVOL [Concomitant]
     Active Substance: DIMENHYDRINATE
  5. ONDANSETRON [Concomitant]
     Active Substance: ONDANSETRON
  6. MIDAZ [Concomitant]
  7. HYDROMORPHONE [Concomitant]
     Active Substance: HYDROMORPHONE
  8. MORPHINE [Concomitant]
     Active Substance: MORPHINE
  9. MELATONIN [Concomitant]
     Active Substance: MELATONIN

REACTIONS (1)
  - Post procedural haemorrhage [Recovered/Resolved]

NARRATIVE: CASE EVENT DATE: 20220326
